FAERS Safety Report 5046798-3 (Version None)
Quarter: 2006Q3

REPORT INFORMATION
  Report Type: 
  Country: None (occurrence: None)
  Receive Date: 20060710
  Receipt Date: 20040510
  Transmission Date: 20061208
  Serious: Yes (Hospitalization)
  Sender: FDA-Public Use
  Company Number: IL-SANOFI-SYNTHELABO-F01200401057

PATIENT
  Sex: Male

DRUGS (8)
  1. OMEPRAZOLE [Concomitant]
     Dosage: UNK
     Route: 065
     Dates: start: 20040129
  2. TRAMADOL HCL [Concomitant]
     Dosage: UNK
     Route: 065
     Dates: start: 20040129
  3. METOPROLOL FUMARATE [Concomitant]
     Dosage: UNK
     Route: 065
     Dates: start: 19990615
  4. NIFEDIPINE [Concomitant]
     Dosage: UNK
     Route: 065
     Dates: start: 19890615
  5. MAALOX FAST BLOCKER [Concomitant]
     Dosage: UNK
     Route: 065
     Dates: start: 20040129
  6. CAPECITABINE [Suspect]
     Dosage: 2150 MG FROM D1 TO D15, Q3W
     Route: 048
     Dates: start: 20040219, end: 20040303
  7. AVASTIN [Suspect]
     Dosage: 5 MG/KG OR PLACEBO
     Route: 042
  8. OXALIPLATIN [Suspect]
     Indication: COLORECTAL CANCER METASTATIC
     Route: 042
     Dates: start: 20040219, end: 20040219

REACTIONS (7)
  - BLOOD CALCIUM DECREASED [None]
  - BLOOD POTASSIUM DECREASED [None]
  - DIARRHOEA [None]
  - FEBRILE NEUTROPENIA [None]
  - GENERAL PHYSICAL HEALTH DETERIORATION [None]
  - PANCYTOPENIA [None]
  - STAPHYLOCOCCAL INFECTION [None]
